FAERS Safety Report 18338351 (Version 1)
Quarter: 2020Q4

REPORT INFORMATION
  Report Type: Spontaneous
  Country: GB (occurrence: GB)
  Receive Date: 20201002
  Receipt Date: 20201002
  Transmission Date: 20210113
  Serious: Yes (Hospitalization, Other)
  Sender: FDA-Public Use
  Company Number: GB-TEVA-2020-GB-1833839

PATIENT
  Age: 32 Year
  Sex: Female
  Weight: 55.34 kg

DRUGS (3)
  1. TOPIRAMATE ACCORD [Concomitant]
     Active Substance: TOPIRAMATE
     Indication: MIGRAINE
     Dosage: 200 MILLIGRAM DAILY;
     Route: 048
     Dates: start: 20190929
  2. AJOVY [Suspect]
     Active Substance: FREMANEZUMAB-VFRM
     Indication: MIGRAINE
     Route: 058
     Dates: start: 20200827, end: 20200923
  3. CERAZETTE [Concomitant]
     Indication: CONTRACEPTION
     Dosage: 75 MICROGRAM DAILY;
     Route: 048

REACTIONS (8)
  - Swollen tongue [Recovered/Resolved]
  - Paraesthesia [Recovered/Resolved]
  - C-reactive protein increased [Recovered/Resolved]
  - Speech disorder [Recovered/Resolved]
  - Tooth disorder [Recovered/Resolved]
  - Anaphylactic reaction [Recovered/Resolved]
  - Angioedema [Recovered/Resolved]
  - Dysphagia [Recovered/Resolved]

NARRATIVE: CASE EVENT DATE: 202009
